FAERS Safety Report 7685459 (Version 2)
Quarter: 2013Q3

REPORT INFORMATION
  Report Type: Spontaneous
  Country: DE (occurrence: DE)
  Receive Date: 20101129
  Receipt Date: 20130710
  Transmission Date: 20140515
  Serious: Yes (Hospitalization, Other)
  Sender: FDA-Public Use
  Company Number: DE-ASTRAZENECA-2010SE52512

PATIENT
  Age: 27993 Day
  Sex: Male
  Weight: 68 kg

DRUGS (4)
  1. CASODEX [Suspect]
     Indication: PROSTATE CANCER
     Route: 048
     Dates: start: 20090812, end: 20101021
  2. CASODEX [Suspect]
     Indication: PROSTATE CANCER
     Route: 048
     Dates: start: 2013
  3. TRENANTONE [Concomitant]
     Indication: PROSTATE CANCER
     Dosage: EVERY THREE MONTHS
     Route: 058
     Dates: start: 20090812
  4. ATACAND PLUS [Concomitant]

REACTIONS (6)
  - Diarrhoea [Recovered/Resolved]
  - Bundle branch block right [Unknown]
  - Bundle branch block left [Unknown]
  - Large intestine polyp [Unknown]
  - Gastrointestinal pain [Not Recovered/Not Resolved]
  - Nausea [Not Recovered/Not Resolved]
